FAERS Safety Report 4447905-3 (Version None)
Quarter: 2004Q3

REPORT INFORMATION
  Report Type: 
  Country: None (occurrence: None)
  Receive Date: 20040813
  Receipt Date: 20040608
  Transmission Date: 20050211
  Serious: No
  Sender: FDA-Public Use
  Company Number: S04-USA-03764-01

PATIENT
  Age: 92 Year
  Sex: Female

DRUGS (3)
  1. NAMENDA [Suspect]
     Indication: MEMORY IMPAIRMENT
     Dosage: 5 MG QD PO
     Route: 048
     Dates: start: 20040101, end: 20040101
  2. ARICEPT [Suspect]
     Indication: MEMORY IMPAIRMENT
     Dosage: 10 MG QD PO
     Route: 048
     Dates: start: 20040101
  3. ARICEPT [Suspect]
     Indication: MEMORY IMPAIRMENT
     Dosage: 5 MG QD PO
     Route: 048
     Dates: end: 20040101

REACTIONS (2)
  - ENERGY INCREASED [None]
  - PARANOIA [None]
